FAERS Safety Report 6845045-7 (Version None)
Quarter: 2010Q3

REPORT INFORMATION
  Report Type: 
  Country: None (occurrence: None)
  Receive Date: 20100715
  Receipt Date: 20070816
  Transmission Date: 20110219
  Serious: No
  Sender: FDA-Public Use
  Company Number: US-PFIZER INC-2007068108

PATIENT
  Sex: Female
  Weight: 189 kg

DRUGS (15)
  1. CHANTIX [Suspect]
     Indication: SMOKING CESSATION THERAPY
     Dates: start: 20070424, end: 20070429
  2. TOPROL-XL [Concomitant]
  3. WARFARIN SODIUM [Concomitant]
  4. ABILIFY [Concomitant]
  5. VYTORIN [Concomitant]
  6. ALPRAZOLAM [Concomitant]
  7. EFFEXOR [Concomitant]
  8. REGLAN [Concomitant]
  9. ISOSORBIDE [Concomitant]
  10. CONCERTA [Concomitant]
  11. SALBUTAMOL [Concomitant]
  12. NITROGLYCERIN [Concomitant]
  13. LASIX [Concomitant]
  14. TIZANIDINE HCL [Concomitant]
  15. FENTANYL [Concomitant]

REACTIONS (2)
  - MALAISE [None]
  - VOMITING [None]
